FAERS Safety Report 7374747-1 (Version None)
Quarter: 2011Q1

REPORT INFORMATION
  Report Type: 
  Country: None (occurrence: None)
  Receive Date: 20110325
  Receipt Date: 20101104
  Transmission Date: 20110831
  Serious: No
  Sender: FDA-Public Use
  Company Number: US-MYLANLABS-2010S1018463

PATIENT
  Age: 68 Year
  Sex: Female

DRUGS (9)
  1. VITAMIN D [Concomitant]
  2. RELAFIN [Concomitant]
  3. IRON [Concomitant]
  4. ENBREL [Concomitant]
  5. RECLAST [Concomitant]
  6. FENTANYL-100 [Suspect]
     Indication: PSORIATIC ARTHROPATHY
     Dosage: CHANGED Q72H
     Route: 062
     Dates: start: 20050101
  7. PREMARIN [Concomitant]
  8. FOLIC ACID [Concomitant]
  9. METHOTREXATE [Concomitant]

REACTIONS (4)
  - DRUG WITHDRAWAL SYNDROME [None]
  - DRUG INEFFECTIVE [None]
  - PARAESTHESIA [None]
  - DYSKINESIA [None]
